FAERS Safety Report 7427587-9 (Version None)
Quarter: 2011Q2

REPORT INFORMATION
  Report Type: 
  Country: None (occurrence: None)
  Receive Date: 20110420
  Receipt Date: 20110406
  Transmission Date: 20111010
  Serious: Yes (Death, Other)
  Sender: FDA-Public Use
  Company Number: GB-GENENTECH-312332

PATIENT
  Sex: Female

DRUGS (1)
  1. LUCENTIS [Suspect]
     Indication: PRODUCT USED FOR UNKNOWN INDICATION
     Route: 031

REACTIONS (4)
  - DEATH [None]
  - RENAL FAILURE [None]
  - TERMINAL STATE [None]
  - CARDIAC DISORDER [None]
